FAERS Safety Report 13347867 (Version 9)
Quarter: 2018Q4

REPORT INFORMATION
  Report Type: Report from Study
  Country: US (occurrence: US)
  Receive Date: 20170317
  Receipt Date: 20181015
  Transmission Date: 20190204
  Serious: Yes (Hospitalization)
  Sender: FDA-Public Use
  Company Number: US-JAZZ-2017-US-000467

PATIENT
  Age: 61 Year
  Sex: Female

DRUGS (23)
  1. XYREM [Suspect]
     Active Substance: SODIUM OXYBATE
     Dosage: 3 G, BID
     Route: 048
     Dates: start: 2017, end: 2017
  2. CYANOCOBALAMIN. [Concomitant]
     Active Substance: CYANOCOBALAMIN
  3. ASCORBIC ACID. [Concomitant]
     Active Substance: ASCORBIC ACID
  4. XYREM [Suspect]
     Active Substance: SODIUM OXYBATE
     Dosage: 2.25 G, BID
     Route: 048
     Dates: start: 20170317, end: 2017
  5. XYREM [Suspect]
     Active Substance: SODIUM OXYBATE
     Dosage: DECREASED DOSE TO 1.5 TO 1.75 G TWICE NIGHTLY
     Route: 048
  6. WELLBUTRIN [Concomitant]
     Active Substance: BUPROPION HYDROCHLORIDE
  7. IRON [Concomitant]
     Active Substance: IRON
  8. CALCIUM CARBONATE W/COLECALCIFEROL [Concomitant]
     Active Substance: CALCIUM CARBONATE\CHOLECALCIFEROL
  9. BIOTIN [Concomitant]
     Active Substance: BIOTIN
  10. XYREM [Suspect]
     Active Substance: SODIUM OXYBATE
     Indication: NARCOLEPSY
     Dosage: 2.25 G, BID
     Route: 048
     Dates: start: 201612, end: 2016
  11. ARMODAFINIL. [Suspect]
     Active Substance: ARMODAFINIL
     Dosage: 150 MG, UNK
     Dates: start: 201610, end: 201610
  12. METHYLPHENIDATE. [Concomitant]
     Active Substance: METHYLPHENIDATE
  13. XYREM [Suspect]
     Active Substance: SODIUM OXYBATE
     Dosage: 2.5 G, FIRST DOSE
     Route: 048
  14. ARMODAFINIL. [Suspect]
     Active Substance: ARMODAFINIL
     Indication: PRODUCT USED FOR UNKNOWN INDICATION
     Dosage: 250 MG, UNK
     Dates: start: 20161025, end: 201610
  15. XYREM [Suspect]
     Active Substance: SODIUM OXYBATE
     Dosage: 2.25 G, BID
     Route: 048
     Dates: start: 2017
  16. FLUCONAZOLE. [Concomitant]
     Active Substance: FLUCONAZOLE
  17. PROGESTERONE. [Concomitant]
     Active Substance: PROGESTERONE
  18. MAGNESIUM [Concomitant]
     Active Substance: MAGNESIUM
  19. XYREM [Suspect]
     Active Substance: SODIUM OXYBATE
     Dosage: 1.5 G, SECOND DOSE
     Route: 048
  20. DHEA [Concomitant]
     Active Substance: PRASTERONE
  21. FISH OIL CONCENTRATE [Concomitant]
     Active Substance: FISH OIL
  22. VITAMIN D3 [Concomitant]
     Active Substance: CHOLECALCIFEROL
  23. XYREM [Suspect]
     Active Substance: SODIUM OXYBATE
     Indication: CATAPLEXY
     Dosage: 3 G, BID
     Route: 048
     Dates: start: 201701, end: 2017

REACTIONS (8)
  - Depression [Recovered/Resolved]
  - Neck pain [Unknown]
  - Feeling abnormal [Not Recovered/Not Resolved]
  - Heart rate increased [Unknown]
  - Chest discomfort [Unknown]
  - Dyspnoea [Not Recovered/Not Resolved]
  - Anxiety [Recovering/Resolving]
  - Wrong technique in product usage process [Unknown]

NARRATIVE: CASE EVENT DATE: 20170212
